FAERS Safety Report 4803217-7 (Version None)
Quarter: 2005Q4

REPORT INFORMATION
  Report Type: 
  Country: None (occurrence: None)
  Receive Date: 20051013
  Receipt Date: 20050927
  Transmission Date: 20060501
  Serious: Yes (Other)
  Sender: FDA-Public Use
  Company Number: USA0509108362

PATIENT
  Sex: Male

DRUGS (1)
  1. HUMULIN N [Suspect]
     Indication: DIABETES MELLITUS
     Dosage: 15 U

REACTIONS (3)
  - BLINDNESS TRANSIENT [None]
  - EYE HAEMORRHAGE [None]
  - VISUAL ACUITY REDUCED [None]
